FAERS Safety Report 25463768 (Version 1)
Quarter: 2025Q2

REPORT INFORMATION
  Report Type: Spontaneous
  Country: GB (occurrence: GB)
  Receive Date: 20250621
  Receipt Date: 20250621
  Transmission Date: 20250716
  Serious: Yes (Other)
  Sender: AUROBINDO
  Company Number: GB-MHRA-EMIS-1523-9f18bc3f-fe86-4dfc-8408-b1132483a068

PATIENT
  Age: 42 Year
  Sex: Female
  Weight: 65 kg

DRUGS (8)
  1. PREGABALIN [Suspect]
     Active Substance: PREGABALIN
     Indication: Product used for unknown indication
     Dosage: 1 DOSAGE FORM, TWO TIMES A DAY (ONE TO BE TAKEN TWICE A DAY, GRAD...)
     Route: 065
     Dates: start: 20250403
  2. METOCLOPRAMIDE [Concomitant]
     Active Substance: METOCLOPRAMIDE
     Indication: Limb injury
     Dosage: 1 DOSAGE FORM, 3 TIMES A DAY (ONE TO BE TAKEN THREE TIMES A DAY AS REQUIRED FOR NAUSEA)
     Route: 065
     Dates: start: 20250114, end: 20250226
  3. METOCLOPRAMIDE [Concomitant]
     Active Substance: METOCLOPRAMIDE
     Dosage: 1 DOSAGE FORM, 3 TIMES A DAY (ONE TO BE TAKEN THREE TIMES A DAY AS REQUIRED FOR NAUSEA)
     Route: 065
     Dates: start: 20250303
  4. NEFOPAM [Concomitant]
     Active Substance: NEFOPAM
     Indication: Neuropathy peripheral
     Dosage: 1 DOSAGE FORM, 3 TIMES A DAY (ONE TO BE TAKEN THREE TIMES A DAY)
     Route: 065
     Dates: start: 20250210, end: 20250311
  5. NEFOPAM [Concomitant]
     Active Substance: NEFOPAM
     Dosage: 2 DOSAGE FORM, 3 TIMES A DAY (TWO TO BE TAKEN THREE TIMES A DAY AS NEEDED)
     Route: 065
     Dates: start: 20250303
  6. NORTRIPTYLINE [Concomitant]
     Active Substance: NORTRIPTYLINE
     Indication: Neuropathy peripheral
     Route: 065
     Dates: start: 20250303
  7. PENICILLIN V [Concomitant]
     Active Substance: PENICILLIN V
     Indication: Product used for unknown indication
     Dosage: 2 DOSAGE FORM, FOUR TIMES/DAY (TWO TO BE TAKEN FOUR TIMES A DAY)
     Route: 065
     Dates: start: 20250310, end: 20250408
  8. TRAMADOL [Concomitant]
     Active Substance: TRAMADOL
     Indication: Limb injury
     Dosage: 50 MILLIGRAM, FOUR TIMES/DAY (TAKE 50MG UP TO FOUR TIMES DAILY FOR PAIN AS REQUIRED)
     Route: 065
     Dates: start: 20250114, end: 20250325

REACTIONS (4)
  - Paranoia [Unknown]
  - Agitation [Unknown]
  - Anxiety [Unknown]
  - Insomnia [Unknown]
